FAERS Safety Report 9700928 (Version 5)
Quarter: 2013Q4

REPORT INFORMATION
  Report Type: Spontaneous
  Country: US (occurrence: US)
  Receive Date: 20131121
  Receipt Date: 20131217
  Transmission Date: 20140711
  Serious: No
  Sender: FDA-Public Use
  Company Number: US-VERTEX PHARMACEUTICALS INC-2013-011160

PATIENT
  Age: 61 Year
  Sex: Male
  Weight: 108.84 kg

DRUGS (7)
  1. INCIVEK [Suspect]
     Indication: HEPATITIS C
     Dosage: 750 MG, TID
     Route: 048
     Dates: start: 20131118, end: 20131128
  2. INCIVEK [Suspect]
     Dosage: 750 MG, TID
     Route: 048
     Dates: start: 20131130
  3. INCIVEK [Suspect]
     Dosage: 3 TABS IN AM AND 4 TABS IN PM
     Route: 048
     Dates: end: 20131211
  4. RIBAVIRIN [Suspect]
     Indication: HEPATITIS C
     Dosage: 800MG AM, 600MG PM
     Route: 048
     Dates: start: 20131118, end: 20131128
  5. RIBAVIRIN [Suspect]
     Dosage: 800MG AM, 600MG PM
     Route: 048
     Dates: start: 20131130, end: 20131211
  6. PEGINTRON [Suspect]
     Indication: HEPATITIS C
     Dosage: 180 ?G, QW
     Route: 058
     Dates: start: 20131118
  7. DIAZEPAM [Concomitant]
     Dosage: 10 MG, TID

REACTIONS (9)
  - Headache [Not Recovered/Not Resolved]
  - Chills [Not Recovered/Not Resolved]
  - Insomnia [Unknown]
  - Feeling abnormal [Recovered/Resolved]
  - Drug dose omission [Recovered/Resolved]
  - Weight decreased [Not Recovered/Not Resolved]
  - Nausea [Recovered/Resolved]
  - Rash [Not Recovered/Not Resolved]
  - Urticaria [Not Recovered/Not Resolved]
